FAERS Safety Report 6308790-8 (Version None)
Quarter: 2009Q3

REPORT INFORMATION
  Report Type: 
  Country: None (occurrence: None)
  Receive Date: 20090813
  Receipt Date: 20080808
  Transmission Date: 20100115
  Serious: Yes (Hospitalization)
  Sender: FDA-Public Use
  Company Number: US-ALLERGAN-0808827US

PATIENT
  Age: 91 Year
  Sex: Female

DRUGS (7)
  1. COMBIGAN [Suspect]
     Indication: GLAUCOMA
     Dosage: 1 GTT, BID
     Route: 047
     Dates: start: 20080616, end: 20080703
  2. XALATAN [Concomitant]
     Dosage: 1 GTT, QHS
     Route: 047
  3. TRAMADOL [Concomitant]
  4. FUROSEMIDE [Concomitant]
  5. METOPROLOL SUCCINATE [Concomitant]
  6. ACTONEL [Concomitant]
  7. ISOSORBIDE [Concomitant]

REACTIONS (4)
  - DYSPNOEA [None]
  - ERYTHEMA [None]
  - FACE OEDEMA [None]
  - OEDEMA PERIPHERAL [None]
